FAERS Safety Report 20805136 (Version 1)
Quarter: 2022Q2

REPORT INFORMATION
  Report Type: Spontaneous
  Country: US (occurrence: US)
  Receive Date: 20220509
  Receipt Date: 20220509
  Transmission Date: 20220721
  Serious: No
  Sender: FDA-Public Use
  Company Number: US-BRISTOL-MYERS SQUIBB COMPANY-2022-022248

PATIENT
  Age: 59 Year
  Sex: Female

DRUGS (2)
  1. REVLIMID [Suspect]
     Active Substance: LENALIDOMIDE
     Indication: Product used for unknown indication
     Route: 048
     Dates: start: 202204
  2. REVLIMID [Suspect]
     Active Substance: LENALIDOMIDE

REACTIONS (11)
  - Fatigue [Unknown]
  - Dyspepsia [Unknown]
  - Dyspepsia [Unknown]
  - Eructation [Unknown]
  - Nausea [Unknown]
  - Diarrhoea [Unknown]
  - Tooth disorder [Unknown]
  - Investigation [Unknown]
  - Back pain [Unknown]
  - Fatigue [Unknown]
  - Quality of life decreased [Unknown]

NARRATIVE: CASE EVENT DATE: 20220401
